FAERS Safety Report 9801093 (Version 1)
Quarter: 2014Q1

REPORT INFORMATION
  Report Type: Spontaneous
  Country: MX (occurrence: MX)
  Receive Date: 20140107
  Receipt Date: 20140107
  Transmission Date: 20141002
  Serious: No
  Sender: FDA-Public Use
  Company Number: MX-SA-2014SA000352

PATIENT
  Age: 23 Year
  Sex: Female
  Weight: 47 kg

DRUGS (2)
  1. ARAVA [Suspect]
     Indication: RHEUMATOID ARTHRITIS
     Route: 048
     Dates: start: 1999, end: 201201
  2. VITAMINS NOS [Concomitant]
     Route: 048
     Dates: start: 201302, end: 201310

REACTIONS (1)
  - Exposure during pregnancy [Unknown]
